FAERS Safety Report 10540976 (Version 1)
Quarter: 2014Q4

REPORT INFORMATION
  Report Type: Spontaneous
  Country: SE (occurrence: None)
  Receive Date: 20141022
  Receipt Date: 20141022
  Transmission Date: 20150529
  Serious: Yes (Other)
  Sender: FDA-Public Use
  Company Number: ADR-2014-01874

PATIENT

DRUGS (2)
  1. LIORESAL [Suspect]
     Active Substance: BACLOFEN
  2. BACLOFEN ORAL [Concomitant]
     Active Substance: BACLOFEN

REACTIONS (3)
  - Swelling [None]
  - Drug hypersensitivity [None]
  - Rash [None]

NARRATIVE: CASE EVENT DATE: 20141001
